FAERS Safety Report 10040940 (Version 3)
Quarter: 2014Q2

REPORT INFORMATION
  Report Type: Spontaneous
  Country: US (occurrence: US)
  Receive Date: 20140327
  Receipt Date: 20140529
  Transmission Date: 20141212
  Serious: No
  Sender: FDA-Public Use
  Company Number: US-PFIZER INC-2014084483

PATIENT
  Age: 37 Year
  Sex: Female
  Weight: 56.24 kg

DRUGS (2)
  1. ADVIL [Suspect]
     Indication: ARTHRALGIA
     Dosage: 200 MG, AS NEEDED
     Dates: end: 2014
  2. LEVOTHYROXINE SODIUM [Concomitant]
     Indication: HYPOTHYROIDISM
     Dosage: 150 MG, DAILY

REACTIONS (4)
  - Poor quality drug administered [Unknown]
  - Pruritus [Unknown]
  - Urticaria [Unknown]
  - Product contamination physical [Unknown]
